FAERS Safety Report 14785784 (Version 2)
Quarter: 2018Q2

REPORT INFORMATION
  Report Type: Spontaneous
  Country: US (occurrence: US)
  Receive Date: 20180420
  Receipt Date: 20180425
  Transmission Date: 20180711
  Serious: Yes (Death, Other)
  Sender: FDA-Public Use
  Company Number: US-SUNOVION-2018SUN001554

PATIENT
  Age: 20 Year
  Sex: Male

DRUGS (3)
  1. ALCOHOL. [Concomitant]
     Active Substance: ALCOHOL
  2. LATUDA [Suspect]
     Active Substance: LURASIDONE HYDROCHLORIDE
     Indication: PRODUCT USED FOR UNKNOWN INDICATION
     Dosage: UNK
     Route: 048
  3. LUVOX [Concomitant]
     Active Substance: FLUVOXAMINE MALEATE

REACTIONS (1)
  - Completed suicide [Fatal]
